FAERS Safety Report 4421287-5 (Version None)
Quarter: 2004Q3

REPORT INFORMATION
  Report Type: 
  Country: None (occurrence: None)
  Receive Date: 20040804
  Receipt Date: 20040721
  Transmission Date: 20050211
  Serious: Yes (Disabling)
  Sender: FDA-Public Use
  Company Number: S04-FRA-03409-01

PATIENT
  Age: 57 Year
  Sex: Female
  Weight: 58 kg

DRUGS (3)
  1. SEROPLEX (ESCITALOPRAM) [Suspect]
     Indication: DEPRESSION
     Dosage: 20 MG QD PO
     Route: 048
     Dates: start: 20030201
  2. LEXOMIL (BROMAZEPAM) [Concomitant]
  3. STILNOX (ZOLPIDEM) [Concomitant]

REACTIONS (5)
  - ARTHRALGIA [None]
  - HAEMORRHAGIC DISORDER [None]
  - PAIN [None]
  - PAIN IN EXTREMITY [None]
  - SWELLING [None]
